FAERS Safety Report 8559769-7 (Version None)
Quarter: 2012Q3

REPORT INFORMATION
  Report Type: 
  Country: None (occurrence: None)
  Receive Date: 20120802
  Receipt Date: 20120730
  Transmission Date: 20120928
  Serious: Yes (Hospitalization)
  Sender: FDA-Public Use
  Company Number: FR-PFIZER INC-2012183469

PATIENT
  Age: 63 Year
  Sex: Male

DRUGS (6)
  1. CIPROFLOXACIN HYDROCHLORIDE [Concomitant]
     Indication: LUNG ABSCESS
     Dosage: UNK
     Route: 048
     Dates: start: 20111101, end: 20120101
  2. CRESTOR [Concomitant]
     Dosage: 10 MG, UNK
     Route: 048
  3. BROMAZEPAM [Concomitant]
     Route: 048
  4. TAZOBACTAM [Suspect]
     Indication: LUNG ABSCESS
     Dosage: 1 DF, SINGLE
     Route: 042
     Dates: start: 20111101, end: 20111101
  5. ZOPICLONE [Concomitant]
     Route: 048
  6. DOMPERIDONE [Concomitant]
     Route: 048

REACTIONS (2)
  - SKIN TEST NEGATIVE [None]
  - ANAPHYLACTOID SHOCK [None]
